FAERS Safety Report 23112107 (Version 2)
Quarter: 2023Q4

REPORT INFORMATION
  Report Type: Report from Study
  Country: US (occurrence: US)
  Receive Date: 20231026
  Receipt Date: 20231109
  Transmission Date: 20240109
  Serious: Yes (Life-Threatening, Other)
  Sender: FDA-Public Use
  Company Number: US-BEH-2023164689

PATIENT
  Age: 31 Year
  Sex: Male
  Weight: 84.3 kg

DRUGS (2)
  1. BERINERT [Suspect]
     Active Substance: HUMAN C1-ESTERASE INHIBITOR
     Indication: Hereditary angioedema
     Dosage: 3000 INTERNATIONAL UNIT/KILOGRAM, BIW
     Route: 058
     Dates: start: 20231024, end: 20231024
  2. BERINERT [Suspect]
     Active Substance: HUMAN C1-ESTERASE INHIBITOR
     Indication: Prophylaxis
     Dosage: 7000 INTERNATIONAL UNIT/KILOGRAM, BIW
     Route: 065

REACTIONS (4)
  - Hereditary angioedema [Unknown]
  - Insurance issue [Unknown]
  - Product use issue [Unknown]
  - Hereditary angioedema [Recovered/Resolved]

NARRATIVE: CASE EVENT DATE: 20231102
